FAERS Safety Report 6005228-5 (Version None)
Quarter: 2008Q4

REPORT INFORMATION
  Report Type: 
  Country: None (occurrence: None)
  Receive Date: 20081216
  Receipt Date: 20071214
  Transmission Date: 20090506
  Serious: No
  Sender: FDA-Public Use
  Company Number: US-AMGEN-KDL255102

PATIENT
  Sex: Female
  Weight: 72.6 kg

DRUGS (2)
  1. ENBREL [Suspect]
     Indication: PSORIASIS
     Route: 058
     Dates: start: 20071022
  2. ORAL CONTRACEPTIVE NOS [Concomitant]
     Dates: start: 20070625

REACTIONS (9)
  - COUGH [None]
  - HEADACHE [None]
  - INNER EAR DISORDER [None]
  - NAUSEA [None]
  - PARANASAL SINUS HYPERSECRETION [None]
  - SINUS CONGESTION [None]
  - SINUS HEADACHE [None]
  - VOMITING [None]
  - WEIGHT DECREASED [None]
